FAERS Safety Report 13207396 (Version 1)
Quarter: 2017Q1

REPORT INFORMATION
  Report Type: Spontaneous
  Country: US (occurrence: US)
  Receive Date: 20170208
  Receipt Date: 20170208
  Transmission Date: 20170428
  Serious: No
  Sender: FDA-Public Use
  Company Number: US-AMGEN-USASP2016146779

PATIENT
  Sex: Female

DRUGS (2)
  1. XARELTO [Concomitant]
     Active Substance: RIVAROXABAN
     Dosage: UNK
  2. NEULASTA [Suspect]
     Active Substance: PEGFILGRASTIM
     Indication: NEUTROPENIA
     Dosage: 6 MG, AFTER CHEMO
     Route: 065

REACTIONS (2)
  - Drug dose omission [Unknown]
  - Application site haemorrhage [Unknown]

NARRATIVE: CASE EVENT DATE: 20161019
